FAERS Safety Report 5174270-9 (Version None)
Quarter: 2006Q4

REPORT INFORMATION
  Report Type: 
  Country: None (occurrence: None)
  Receive Date: 20061214
  Receipt Date: 20061206
  Transmission Date: 20070319
  Serious: Yes (Other)
  Sender: FDA-Public Use
  Company Number: SE-JNJFOC-20061202906

PATIENT
  Age: 18 Year
  Sex: Male
  Weight: 70.5 kg

DRUGS (1)
  1. RISPERDAL [Suspect]
     Indication: TOURETTE'S DISORDER
     Route: 048

REACTIONS (2)
  - BLOOD INSULIN INCREASED [None]
  - BLOOD PROLACTIN INCREASED [None]
